FAERS Safety Report 9206851 (Version 1)
Quarter: 2013Q2

REPORT INFORMATION
  Report Type: Spontaneous
  Country: US (occurrence: US)
  Receive Date: 20130403
  Receipt Date: 20130403
  Transmission Date: 20140414
  Serious: Yes (Other)
  Sender: FDA-Public Use
  Company Number: US-BAYER-2013-040700

PATIENT
  Age: 23 Year
  Sex: Female

DRUGS (4)
  1. YAZ [Suspect]
  2. YASMIN [Suspect]
     Dosage: UNK
     Dates: start: 2006, end: 2008
  3. OCELLA [Suspect]
     Dosage: UNK
     Dates: start: 2011, end: 2012
  4. GIANVI [Suspect]

REACTIONS (1)
  - Cholecystectomy [None]
